FAERS Safety Report 17969560 (Version 1)
Quarter: 2020Q3

REPORT INFORMATION
  Report Type: Report from Study
  Country: PT (occurrence: PT)
  Receive Date: 20200701
  Receipt Date: 20200701
  Transmission Date: 20201103
  Serious: Yes (Other)
  Sender: FDA-Public Use
  Company Number: PT-ASTRAZENECA-2020SE16798

PATIENT
  Age: 3688 Day
  Sex: Male
  Weight: 36 kg

DRUGS (1)
  1. SELUMETINIB. [Suspect]
     Active Substance: SELUMETINIB
     Indication: NEUROFIBROMA
     Route: 048
     Dates: start: 20181016

REACTIONS (1)
  - Paronychia [Recovering/Resolving]

NARRATIVE: CASE EVENT DATE: 20191207
